FAERS Safety Report 25622725 (Version 1)
Quarter: 2025Q3

REPORT INFORMATION
  Report Type: Report from Study
  Country: US (occurrence: US)
  Receive Date: 20250730
  Receipt Date: 20250730
  Transmission Date: 20251021
  Serious: Yes (Other)
  Sender: ELI LILLY AND COMPANY
  Company Number: US-ELI_LILLY_AND_COMPANY-US202505023035

PATIENT
  Age: 67 Year
  Sex: Female
  Weight: 131.52 kg

DRUGS (1)
  1. VERZENIO [Suspect]
     Active Substance: ABEMACICLIB
     Indication: Breast cancer
     Dosage: 50 MG, BID
     Route: 048
     Dates: start: 20250422, end: 20250521

REACTIONS (3)
  - Acute kidney injury [Recovering/Resolving]
  - Feeling of body temperature change [Unknown]
  - Fatigue [Unknown]
